FAERS Safety Report 8071421-3 (Version None)
Quarter: 2012Q1

REPORT INFORMATION
  Report Type: 
  Country: None (occurrence: None)
  Receive Date: 20120125
  Receipt Date: 20120118
  Transmission Date: 20120608
  Serious: Yes (Hospitalization)
  Sender: FDA-Public Use
  Company Number: RU-ELI_LILLY_AND_COMPANY-RU201112007248

PATIENT
  Age: 50 Year
  Sex: Male

DRUGS (2)
  1. HUMULIN 70/30 [Suspect]
     Indication: TYPE 1 DIABETES MELLITUS
     Dosage: 30 U, BID
     Route: 058
     Dates: start: 20110901
  2. HUMULIN 70/30 [Suspect]
     Dosage: 26 U, BID

REACTIONS (6)
  - GASTRITIS [None]
  - NEUROPATHY PERIPHERAL [None]
  - GASTROOESOPHAGEAL REFLUX DISEASE [None]
  - DIABETES MELLITUS INADEQUATE CONTROL [None]
  - FOOD ALLERGY [None]
  - RETINOPATHY [None]
